FAERS Safety Report 9431217 (Version 1)
Quarter: 2013Q3

REPORT INFORMATION
  Report Type: Spontaneous
  Country: US (occurrence: US)
  Receive Date: 20130730
  Receipt Date: 20130730
  Transmission Date: 20140515
  Serious: Yes (Other)
  Sender: FDA-Public Use
  Company Number: US-TEVA-421276USA

PATIENT
  Sex: Female

DRUGS (1)
  1. CARVEDILOL [Suspect]
     Dates: end: 201307

REACTIONS (4)
  - Pharyngeal oedema [Unknown]
  - Choking sensation [Unknown]
  - Cough [Unknown]
  - Sneezing [Unknown]
